FAERS Safety Report 24604686 (Version 1)
Quarter: 2024Q4

REPORT INFORMATION
  Report Type: Spontaneous
  Country: AU (occurrence: AU)
  Receive Date: 20241111
  Receipt Date: 20241111
  Transmission Date: 20250114
  Serious: Yes (Other)
  Sender: MYLAN
  Company Number: AU-MYLANLABS-2023M1069939

PATIENT
  Sex: Male

DRUGS (1)
  1. CLOZARIL [Suspect]
     Active Substance: CLOZAPINE
     Indication: Schizophrenia
     Dosage: UNK (175-200 MILLIGRAM)
     Route: 048
     Dates: start: 20221222, end: 20230623

REACTIONS (5)
  - Influenza [Recovering/Resolving]
  - Respiratory syncytial virus test positive [Unknown]
  - Monocyte count increased [Not Recovered/Not Resolved]
  - Neutrophil count decreased [Recovered/Resolved]
  - Product dose omission issue [Unknown]

NARRATIVE: CASE EVENT DATE: 20230101
